FAERS Safety Report 17073912 (Version 1)
Quarter: 2019Q4

REPORT INFORMATION
  Report Type: Report from Study
  Country: US (occurrence: US)
  Receive Date: 20191126
  Receipt Date: 20191126
  Transmission Date: 20200122
  Serious: Yes (Hospitalization)
  Sender: FDA-Public Use
  Company Number: US-ROCHE-2477619

PATIENT
  Sex: Female

DRUGS (1)
  1. VALGANCICLOVIR. [Suspect]
     Active Substance: VALGANCICLOVIR
     Indication: DIFFUSE LARGE B-CELL LYMPHOMA
     Dosage: 1 TAB BID
     Route: 065

REACTIONS (5)
  - Pneumonia [Unknown]
  - Off label use [Unknown]
  - Dry mouth [Unknown]
  - Asthenia [Unknown]
  - Intentional product use issue [Unknown]
